FAERS Safety Report 5463952-7 (Version None)
Quarter: 2007Q3

REPORT INFORMATION
  Report Type: 
  Country: None (occurrence: None)
  Receive Date: 20070921
  Receipt Date: 20070913
  Transmission Date: 20080115
  Serious: Yes (Other)
  Sender: FDA-Public Use
  Company Number: PHBS2007JP11798

PATIENT
  Age: 9 Year
  Sex: Male

DRUGS (2)
  1. AREDIA [Suspect]
     Indication: OSTEOGENESIS IMPERFECTA
     Dosage: 0.5MG/KG/DOSE X 3 DAYS
     Route: 042
     Dates: start: 20050325, end: 20050327
  2. AREDIA [Suspect]
     Dosage: 0.5MG/KG/DOSE X 3 DAYS
     Route: 042
     Dates: start: 20050524, end: 20050526

REACTIONS (5)
  - FAILURE TO THRIVE [None]
  - INFLAMMATION [None]
  - LOWER LIMB FRACTURE [None]
  - PYREXIA [None]
  - UPPER LIMB FRACTURE [None]
